FAERS Safety Report 9830425 (Version 1)
Quarter: 2014Q1

REPORT INFORMATION
  Report Type: Spontaneous
  Country: BE (occurrence: BE)
  Receive Date: 20140120
  Receipt Date: 20140120
  Transmission Date: 20141002
  Serious: Yes (Death, Other)
  Sender: FDA-Public Use
  Company Number: BE-JNJFOC-20140107341

PATIENT
  Age: 78 Year
  Sex: Male
  Weight: 74 kg

DRUGS (11)
  1. XARELTO [Suspect]
     Indication: ATRIAL FIBRILLATION
     Route: 048
  2. XARELTO [Suspect]
     Indication: CEREBROVASCULAR ACCIDENT PROPHYLAXIS
     Route: 048
  3. CLARITHROMYCIN [Interacting]
     Indication: PRODUCT USED FOR UNKNOWN INDICATION
     Route: 065
  4. ALLOPURINOL [Concomitant]
     Route: 048
  5. GLUCOPHAGE [Concomitant]
     Route: 048
  6. BURINEX [Concomitant]
     Route: 048
  7. KREDEX [Concomitant]
     Route: 048
  8. CRESTOR [Concomitant]
     Route: 065
  9. ACCUPRIL [Concomitant]
     Route: 048
  10. ALDACTONE [Concomitant]
     Route: 048
  11. UNI DIAMICRON [Concomitant]
     Route: 065

REACTIONS (5)
  - Haemorrhage intracranial [Fatal]
  - Renal failure acute [Unknown]
  - Toxicity to various agents [Unknown]
  - Diarrhoea [Unknown]
  - Drug interaction [Unknown]
